FAERS Safety Report 7402911-1 (Version None)
Quarter: 2011Q2

REPORT INFORMATION
  Report Type: 
  Country: None (occurrence: None)
  Receive Date: 20110408
  Receipt Date: 20110328
  Transmission Date: 20111010
  Serious: Yes (Other)
  Sender: FDA-Public Use
  Company Number: DE-ELI_LILLY_AND_COMPANY-DE201103007898

PATIENT
  Age: 82 Year
  Sex: Female

DRUGS (6)
  1. RENNIE [Concomitant]
  2. AERIUS [Concomitant]
  3. VITAMIN D [Concomitant]
  4. FORTEO [Suspect]
     Dosage: UNK
     Route: 058
     Dates: start: 20091116
  5. CALCIUM [Concomitant]
  6. NOVALGIN                           /00169801/ [Concomitant]

REACTIONS (5)
  - FALL [None]
  - HAIR GROWTH ABNORMAL [None]
  - VERTEBROPLASTY [None]
  - HUMERUS FRACTURE [None]
  - BONE DENSITY DECREASED [None]
